FAERS Safety Report 4294556-X (Version None)
Quarter: 2004Q1

REPORT INFORMATION
  Report Type: 
  Country: None (occurrence: None)
  Receive Date: 20040211
  Receipt Date: 20040204
  Transmission Date: 20041129
  Serious: Yes (Disabling, Other)
  Sender: FDA-Public Use
  Company Number: 2004194844DE

PATIENT
  Age: 65 Year
  Sex: Male

DRUGS (2)
  1. DETRUSITOL (TOLTERODINE) CAPSULE, PROLONGED RELEASE [Suspect]
     Indication: URGE INCONTINENCE
     Dosage: 4 MG, QD, ORAL
     Route: 048
     Dates: start: 20031219, end: 20031226
  2. OMNIC (TAMSULOSIN HYDROCHLORIDE) [Concomitant]

REACTIONS (3)
  - MUSCULAR WEAKNESS [None]
  - MYALGIA [None]
  - TENDON DISORDER [None]
